FAERS Safety Report 14618093 (Version 6)
Quarter: 2022Q2

REPORT INFORMATION
  Report Type: Report from Study
  Country: TW (occurrence: TW)
  Receive Date: 20180309
  Receipt Date: 20220614
  Transmission Date: 20220721
  Serious: Yes (Hospitalization)
  Sender: FDA-Public Use
  Company Number: TW-ALEXION PHARMACEUTICALS INC.-A201802196

PATIENT
  Age: 29 Year
  Sex: Female
  Weight: 56 kg

DRUGS (5)
  1. ECULIZUMAB [Suspect]
     Active Substance: ECULIZUMAB
     Dosage: 1200 MG, Q2W
     Route: 042
     Dates: start: 20180112
  2. ECULIZUMAB [Suspect]
     Active Substance: ECULIZUMAB
     Dosage: 1200 MG, Q2W
     Route: 042
     Dates: start: 20180129
  3. ECULIZUMAB [Suspect]
     Active Substance: ECULIZUMAB
     Dosage: 1200 MG, UNK
     Route: 042
     Dates: start: 20211001
  4. ECULIZUMAB [Suspect]
     Active Substance: ECULIZUMAB
     Indication: Atypical haemolytic uraemic syndrome
     Dosage: 900 MG, QW
     Route: 065
  5. TECHNETIUM TC-99M MEDRONATE KIT [Concomitant]
     Active Substance: TECHNETIUM TC-99M MEDRONATE
     Indication: Product used for unknown indication
     Route: 042

REACTIONS (1)
  - BK virus infection [Recovered/Resolved]

NARRATIVE: CASE EVENT DATE: 20180120
